FAERS Safety Report 5464120-5 (Version None)
Quarter: 2007Q3

REPORT INFORMATION
  Report Type: 
  Country: None (occurrence: None)
  Receive Date: 20070921
  Receipt Date: 20070911
  Transmission Date: 20080115
  Serious: Yes (Other)
  Sender: FDA-Public Use
  Company Number: US-ROCHE-460902

PATIENT
  Age: 61 Year
  Sex: Female

DRUGS (10)
  1. PEGASYS [Suspect]
     Indication: HEPATITIS C VIRUS
     Dosage: PATIENT REPORTED TO BE IN WEEK 11 OF TREATMENT.
     Route: 058
     Dates: start: 20070629
  2. PEGASYS [Suspect]
     Route: 058
     Dates: start: 20051218, end: 20060927
  3. PEGASYS [Suspect]
     Dosage: STRENGTH REPORTED AS 180MCG/0.5ML
     Route: 058
     Dates: start: 20051102, end: 20051217
  4. RIBAVIRIN [Suspect]
     Indication: HEPATITIS C VIRUS
     Route: 048
     Dates: start: 20051218, end: 20060927
  5. RIBAVIRIN [Suspect]
     Route: 048
     Dates: start: 20051102, end: 20051217
  6. COPEGUS [Suspect]
     Dosage: PATIENT REPORTED TO BE IN WEEK 11 OF TREATMENT.
     Route: 065
     Dates: start: 20070629
  7. ESTROGEN [Concomitant]
     Dates: start: 19970101
  8. WELLBUTRIN [Concomitant]
     Indication: DEPRESSION
  9. SEROQUEL [Concomitant]
     Indication: DEPRESSION
  10. ASPIRIN [Concomitant]
     Dosage: THE PATIENT TOOK ^A LITTLE PIECE^ EVERY DAY, THEN A ^WHOLE ASPIRIN^ ONCE DAILY SINCE EVENT OF TIA.

REACTIONS (10)
  - BLOOD PRESSURE INCREASED [None]
  - DEHYDRATION [None]
  - FATIGUE [None]
  - HEPATITIS C [None]
  - NAUSEA [None]
  - RED BLOOD CELL COUNT DECREASED [None]
  - TRANSIENT ISCHAEMIC ATTACK [None]
  - VOMITING [None]
  - WEIGHT INCREASED [None]
  - WHITE BLOOD CELL COUNT DECREASED [None]
